FAERS Safety Report 8317391-1 (Version None)
Quarter: 2012Q2

REPORT INFORMATION
  Report Type: 
  Country: None (occurrence: None)
  Receive Date: 20120427
  Receipt Date: 20120417
  Transmission Date: 20120825
  Serious: Yes (Other)
  Sender: FDA-Public Use
  Company Number: US-CELGENEUS-163-21880-12041929

PATIENT
  Age: 49 Year
  Sex: Male
  Weight: 131 kg

DRUGS (2)
  1. REVLIMID [Suspect]
     Dosage: 25 MILLIGRAM
     Route: 048
     Dates: start: 20091001, end: 20100901
  2. DEXAMETHASONE [Concomitant]
     Route: 065
     Dates: start: 20091001, end: 20100901

REACTIONS (3)
  - CARDIOVASCULAR DISORDER [None]
  - RENAL IMPAIRMENT [None]
  - MULTIPLE MYELOMA [None]
